FAERS Safety Report 9559643 (Version 1)
Quarter: 2013Q3

REPORT INFORMATION
  Report Type: Spontaneous
  Country: US (occurrence: None)
  Receive Date: 20130906
  Receipt Date: 20130906
  Transmission Date: 20140515
  Serious: Yes (Other)
  Sender: FDA-Public Use
  Company Number: 163-POMAL-13071894

PATIENT
  Age: 67 Year
  Sex: Female

DRUGS (7)
  1. POMALYST [Suspect]
     Indication: PLASMA CELL MYELOMA
     Dosage: CAPSULE, 4 MG, 21 IN 21 D, PO
     Route: 048
     Dates: start: 20130219
  2. DIPHENOXYLATE-ATROPINE (LOMOTIL) [Concomitant]
  3. GABAPENTIN (GABAPENTIN) [Concomitant]
  4. MORPHINE SULFATE ER (MORPHINE SULFATE) [Concomitant]
  5. OMEPRAZOLE (OMEPRAZOLE) [Concomitant]
  6. SYNTHROID (LEVOTHYROXINE SODIUM) [Concomitant]
  7. VALACICLOVIR HCL (VALACICLOVIR) [Concomitant]

REACTIONS (1)
  - Plasma cell myeloma [None]
